FAERS Safety Report 14379372 (Version 3)
Quarter: 2018Q1

REPORT INFORMATION
  Report Type: Report from Study
  Country: None (occurrence: US)
  Receive Date: 20180112
  Receipt Date: 20180316
  Transmission Date: 20180509
  Serious: Yes (Hospitalization)
  Sender: FDA-Public Use
  Company Number: US-ABBVIE-18K-163-2215470-00

PATIENT
  Age: 34 Year
  Sex: Male

DRUGS (1)
  1. HUMIRA [Suspect]
     Active Substance: ADALIMUMAB
     Indication: CROHN^S DISEASE
     Route: 058
     Dates: start: 20171108

REACTIONS (4)
  - Haemoglobin decreased [Recovered/Resolved]
  - Wound infection [Not Recovered/Not Resolved]
  - Wound infection [Recovered/Resolved]
  - Cyclic vomiting syndrome [Unknown]

NARRATIVE: CASE EVENT DATE: 201803
